FAERS Safety Report 4402829-2 (Version None)
Quarter: 2004Q3

REPORT INFORMATION
  Report Type: 
  Country: None (occurrence: None)
  Receive Date: 20040721
  Receipt Date: 20040714
  Transmission Date: 20050211
  Serious: Yes (Hospitalization)
  Sender: FDA-Public Use
  Company Number: ES-BRISTOL-MYERS SQUIBB COMPANY-12639746

PATIENT
  Age: 46 Year
  Sex: Male
  Weight: 81 kg

DRUGS (5)
  1. EFAVIRENZ [Suspect]
     Indication: HIV INFECTION
     Dates: start: 20000101
  2. DIDANOSINE [Suspect]
     Indication: HIV INFECTION
     Dates: start: 20000101
  3. TENOFOVIR DISOPROXIL FUMARATE [Suspect]
     Indication: HIV INFECTION
  4. ENALAPRIL MALEATE [Concomitant]
  5. PRAVASTATIN SODIUM [Concomitant]

REACTIONS (1)
  - RENAL IMPAIRMENT [None]
